FAERS Safety Report 9009362 (Version 1)
Quarter: 2013Q1

REPORT INFORMATION
  Report Type: Spontaneous
  Country: US (occurrence: US)
  Receive Date: 20130111
  Receipt Date: 20130111
  Transmission Date: 20140127
  Serious: Yes (Other)
  Sender: FDA-Public Use
  Company Number: US-009507513-1301USA002863

PATIENT
  Sex: Male

DRUGS (6)
  1. SINGULAIR [Suspect]
     Dosage: UNK
     Route: 048
  2. MUCOSOLVAN [Suspect]
     Route: 048
  3. SOLU-MEDROL [Suspect]
     Route: 042
  4. SAXIZON [Suspect]
     Route: 042
  5. NEOPHYLLINE [Suspect]
     Route: 048
  6. PENICILLIN [Suspect]

REACTIONS (1)
  - Amylase increased [Unknown]
